FAERS Safety Report 7500559-1 (Version None)
Quarter: 2011Q2

REPORT INFORMATION
  Report Type: 
  Country: None (occurrence: None)
  Receive Date: 20110524
  Receipt Date: 20110518
  Transmission Date: 20111010
  Serious: No
  Sender: FDA-Public Use
  Company Number: US-PFIZER INC-2011107395

PATIENT
  Age: 71 Year
  Sex: Female
  Weight: 54 kg

DRUGS (2)
  1. EPLERENONE [Suspect]
     Dosage: UNK
  2. EPLERENONE [Suspect]
     Indication: HYPERTENSION
     Dosage: UNK

REACTIONS (4)
  - DIARRHOEA [None]
  - BLOOD PRESSURE INADEQUATELY CONTROLLED [None]
  - ABDOMINAL DISCOMFORT [None]
  - MALAISE [None]
